FAERS Safety Report 4990160-6 (Version None)
Quarter: 2006Q2

REPORT INFORMATION
  Report Type: 
  Country: None (occurrence: None)
  Receive Date: 20060501
  Receipt Date: 20060501
  Transmission Date: 20061013
  Serious: No
  Sender: FDA-Public Use
  Company Number: None

PATIENT
  Age: 77 Year
  Sex: Male
  Weight: 65.7716 kg

DRUGS (1)
  1. ASPIRIN [Suspect]
     Indication: OSTEOARTHRITIS
     Dosage: 650 MGM TID PO
     Route: 048
     Dates: start: 20060208, end: 20060218

REACTIONS (1)
  - TINNITUS [None]
